FAERS Safety Report 23878403 (Version 3)
Quarter: 2025Q1

REPORT INFORMATION
  Report Type: Spontaneous
  Country: US (occurrence: None)
  Receive Date: 20240521
  Receipt Date: 20250304
  Transmission Date: 20250408
  Serious: Yes (Other)
  Sender: INCYTE
  Company Number: US-INCYTE CORPORATION-2024IN005201

PATIENT

DRUGS (2)
  1. JAKAFI [Suspect]
     Active Substance: RUXOLITINIB
     Indication: Essential thrombocythaemia
     Dosage: 10 MILLIGRAM, BID
  2. JAKAFI [Suspect]
     Active Substance: RUXOLITINIB

REACTIONS (9)
  - Neuropathy peripheral [Unknown]
  - Thrombosis [Unknown]
  - Oral disorder [Unknown]
  - Fatigue [Unknown]
  - Muscle spasms [Unknown]
  - Lethargy [Unknown]
  - Trichorrhexis [Unknown]
  - Ill-defined disorder [Unknown]
  - Off label use [Unknown]
